FAERS Safety Report 20328203 (Version 3)
Quarter: 2022Q2

REPORT INFORMATION
  Report Type: Spontaneous
  Country: JP (occurrence: JP)
  Receive Date: 20220112
  Receipt Date: 20220502
  Transmission Date: 20220720
  Serious: Yes (Hospitalization)
  Sender: FDA-Public Use
  Company Number: JP-ONO-2022JP000463

PATIENT
  Age: 37 Year
  Sex: Male
  Weight: 71.9 kg

DRUGS (16)
  1. BRAFTOVI [Suspect]
     Active Substance: ENCORAFENIB
     Indication: Colon cancer
     Dosage: 300 MG, EVERYDAY
     Route: 048
     Dates: start: 20211210, end: 20211212
  2. BRAFTOVI [Suspect]
     Active Substance: ENCORAFENIB
     Dosage: 300 MG, EVERYDAY
     Route: 048
     Dates: start: 20211218
  3. MEKTOVI [Suspect]
     Active Substance: BINIMETINIB
     Indication: Colon cancer
     Dosage: 45 MG, Q12H
     Route: 048
     Dates: start: 20211210, end: 20211212
  4. MEKTOVI [Suspect]
     Active Substance: BINIMETINIB
     Dosage: 45 MG, Q12H
     Route: 048
     Dates: start: 20211218
  5. ERBITUX [Concomitant]
     Active Substance: CETUXIMAB
     Indication: Colon cancer
     Dosage: UNK
     Route: 065
     Dates: start: 20211210
  6. HYDROMORPHONE HYDROCHLORIDE [Concomitant]
     Active Substance: HYDROMORPHONE HYDROCHLORIDE
     Indication: Colon cancer
     Dosage: 24, UNIT UNKNOWN, EVERYDAY
     Route: 048
  7. SYMPROIC [Concomitant]
     Active Substance: NALDEMEDINE
     Dosage: 0.2, UNIT UNKNOWN, EVERYDAY
     Route: 048
  8. MAGNESIUM OXIDE [Concomitant]
     Active Substance: MAGNESIUM OXIDE
     Dosage: 660, UNIT UNKNOWN, Q8H
     Route: 048
  9. MIYA-BM [Concomitant]
     Active Substance: CLOSTRIDIUM BUTYRICUM SPORES STRAIN M-55
     Dosage: 20, UNIT UNKNOWN, Q8H
     Route: 048
  10. CALONAL [Concomitant]
     Active Substance: ACETAMINOPHEN
     Indication: Colon cancer
     Dosage: 500, UNIT UNKNOWN, Q6H
     Route: 048
  11. MIROGABALIN BESYLATE [Concomitant]
     Active Substance: MIROGABALIN BESYLATE
     Dosage: 5, UNIT UNKNOWN, Q12H
     Route: 048
  12. LANSOPRAZOLE [Concomitant]
     Active Substance: LANSOPRAZOLE
     Indication: Prophylaxis
     Dosage: 15, UNIT UNKNOWN, EVERYDAY
     Route: 048
  13. BELSOMRA [Concomitant]
     Active Substance: SUVOREXANT
     Dosage: 15, UNIT UNKNOWN, EVERYDAY
     Route: 048
  14. FEXOFENADINE HYDROCHLORIDE [Concomitant]
     Active Substance: FEXOFENADINE HYDROCHLORIDE
     Dosage: 60, UNIT UNKNOWN, Q12H
     Route: 048
  15. AMITIZA [Concomitant]
     Active Substance: LUBIPROSTONE
     Dosage: 24 UG, Q12H
     Route: 065
  16. CELECOXIB [Concomitant]
     Active Substance: CELECOXIB
     Dosage: 100 MG, Q12H
     Route: 065

REACTIONS (6)
  - Diarrhoea [Recovering/Resolving]
  - Liver disorder [Recovering/Resolving]
  - Nausea [Recovering/Resolving]
  - Vomiting [Recovering/Resolving]
  - Viral infection [Unknown]
  - Gastroenteritis [Unknown]

NARRATIVE: CASE EVENT DATE: 20211212
